FAERS Safety Report 9395568 (Version 1)
Quarter: 2013Q3

REPORT INFORMATION
  Report Type: Spontaneous
  Country: CA (occurrence: CA)
  Receive Date: 20130711
  Receipt Date: 20130711
  Transmission Date: 20140515
  Serious: Yes (Hospitalization, Other)
  Sender: FDA-Public Use
  Company Number: CA-TEVA-418123USA

PATIENT
  Age: 38 Year
  Sex: Male

DRUGS (1)
  1. WARFARIN [Suspect]
     Indication: PULMONARY EMBOLISM
     Route: 065

REACTIONS (2)
  - Haemorrhage urinary tract [Recovering/Resolving]
  - Coagulopathy [Recovering/Resolving]
